FAERS Safety Report 9571346 (Version 1)
Quarter: 2013Q1

REPORT INFORMATION
  Report Type: Spontaneous
  Country: US (occurrence: None)
  Receive Date: 20120509
  Receipt Date: 20120509
  Transmission Date: 20140127
  Serious: Yes (Hospitalization)
  Sender: FDA-Public Use
  Company Number: CHPA2009US14352

PATIENT
  Age: 58 Year
  Sex: Female
  Weight: 111.1 kg

DRUGS (1)
  1. VOLTAREN GEL (NCH) (DICLOFENAC SODIUM) GEL [Suspect]
     Dosage: 1 G, BID ON EACH KNEE,ALSO APPLIED 1/2 GRAM ON WRIST
     Route: 061
     Dates: start: 20090625, end: 20090625

REACTIONS (3)
  - Asthma [None]
  - Wrong technique in drug usage process [None]
  - Dyspnoea [None]
